FAERS Safety Report 8537616-7 (Version None)
Quarter: 2012Q3

REPORT INFORMATION
  Report Type: 
  Country: None (occurrence: None)
  Receive Date: 20120725
  Receipt Date: 20120716
  Transmission Date: 20120928
  Serious: Yes (Hospitalization, Other)
  Sender: FDA-Public Use
  Company Number: US-ASTRAZENECA-2010SE56402

PATIENT
  Age: 53 Year
  Sex: Female
  Weight: 124.3 kg

DRUGS (11)
  1. CRESTOR [Suspect]
     Route: 048
  2. FENOFIBRATE [Concomitant]
  3. NEXIUM [Suspect]
     Indication: GASTROOESOPHAGEAL REFLUX DISEASE
     Route: 048
     Dates: start: 20010101
  4. ZANTAC [Concomitant]
  5. ULTRAM [Concomitant]
  6. XANAX XR [Concomitant]
  7. NEURONTIN [Concomitant]
     Indication: FIBROMYALGIA
  8. KLORCON 20 [Concomitant]
  9. MOBIC GENERIC [Concomitant]
  10. DEMADEX [Concomitant]
  11. MIRALAX [Concomitant]

REACTIONS (7)
  - UTERINE CANCER [None]
  - NEOPLASM [None]
  - ENDOMETRIOSIS [None]
  - CHRONIC SINUSITIS [None]
  - DRY MOUTH [None]
  - OVARIAN CANCER [None]
  - POLYP [None]
